FAERS Safety Report 9219144 (Version 1)
Quarter: 2013Q2

REPORT INFORMATION
  Report Type: Spontaneous
  Country: US (occurrence: None)
  Receive Date: 20130405
  Receipt Date: 20130405
  Transmission Date: 20140414
  Serious: Yes (Hospitalization)
  Sender: FDA-Public Use
  Company Number: None

PATIENT
  Age: 88 Year
  Sex: Male
  Weight: 76.1 kg

DRUGS (2)
  1. METFORMIN 500 MG [Suspect]
     Indication: DIABETES MELLITUS
     Route: 048
     Dates: start: 20130130, end: 20130205
  2. GLIPIZIDE [Suspect]
     Route: 048
     Dates: start: 20121231, end: 20130205

REACTIONS (7)
  - Hypoglycaemia [None]
  - Weight decreased [None]
  - Hypophagia [None]
  - Malnutrition [None]
  - Decreased appetite [None]
  - Cellulitis [None]
  - Gait disturbance [None]
